FAERS Safety Report 5489170-4 (Version None)
Quarter: 2007Q4

REPORT INFORMATION
  Report Type: 
  Country: None (occurrence: None)
  Receive Date: 20071016
  Receipt Date: 20071003
  Transmission Date: 20080405
  Serious: Yes (Hospitalization, Other)
  Sender: FDA-Public Use
  Company Number: 238429K07USA

PATIENT
  Age: 48 Year
  Sex: Female

DRUGS (1)
  1. REBIF [Suspect]
     Indication: MULTIPLE SCLEROSIS
     Dosage: 44 MCG, 3 IN 1 WEEKS, SUBCUTANEOUS
     Route: 058
     Dates: start: 20050112

REACTIONS (7)
  - CAROTID ARTERY ANEURYSM [None]
  - CHILLS [None]
  - DEPRESSION [None]
  - INTRACRANIAL ANEURYSM [None]
  - PAIN [None]
  - PYREXIA [None]
  - RETINAL ANEURYSM [None]
